FAERS Safety Report 5996993-1 (Version None)
Quarter: 2008Q4

REPORT INFORMATION
  Report Type: 
  Country: None (occurrence: None)
  Receive Date: 20081212
  Receipt Date: 20081030
  Transmission Date: 20090506
  Serious: No
  Sender: FDA-Public Use
  Company Number: US-ABBOTT-08P-163-0485001-00

PATIENT
  Sex: Male

DRUGS (1)
  1. HUMIRA [Suspect]
     Indication: ANKYLOSING SPONDYLITIS
     Dates: start: 20081026

REACTIONS (4)
  - INJECTION SITE IRRITATION [None]
  - INJECTION SITE PAIN [None]
  - PAIN IN EXTREMITY [None]
  - RESTLESS LEGS SYNDROME [None]
